FAERS Safety Report 6170507-8 (Version None)
Quarter: 2009Q2

REPORT INFORMATION
  Report Type: 
  Country: None (occurrence: None)
  Receive Date: 20090427
  Receipt Date: 20090427
  Transmission Date: 20091009
  Serious: Yes (Death, Hospitalization)
  Sender: FDA-Public Use
  Company Number: None

PATIENT
  Age: 31 Year
  Sex: Female
  Weight: 90 kg

DRUGS (6)
  1. VERAPAMIL EXTENDED-RELEASE [Suspect]
     Indication: SUICIDE ATTEMPT
     Dosage: 70 TABLETS PO OTO
     Route: 048
     Dates: start: 20090113
  2. AMITRIPTYLINE HCL [Suspect]
     Indication: SUICIDE ATTEMPT
     Dosage: 60 TALBETS PO OTO
     Route: 048
     Dates: start: 20090113
  3. CYMBALTA [Concomitant]
  4. HYDROCHLOROTHIAZIDE [Concomitant]
  5. METFORMIN HCL [Concomitant]
  6. PERCOCET [Concomitant]

REACTIONS (4)
  - BRADYCARDIA [None]
  - INCORRECT DOSE ADMINISTERED [None]
  - SEROTONIN SYNDROME [None]
  - TREATMENT FAILURE [None]
